FAERS Safety Report 21394412 (Version 1)
Quarter: 2022Q3

REPORT INFORMATION
  Report Type: Report from Study
  Country: US (occurrence: US)
  Receive Date: 20220930
  Receipt Date: 20220930
  Transmission Date: 20221026
  Serious: No
  Sender: FDA-Public Use
  Company Number: US-ABBVIE-4132020

PATIENT
  Sex: Female

DRUGS (4)
  1. SKYRIZI [Suspect]
     Active Substance: RISANKIZUMAB-RZAA
     Indication: Psoriasis
     Route: 058
  2. Johnson + Johnson  Covid vaccine [Concomitant]
     Indication: COVID-19 immunisation
     Dosage: 1ST DOSE?1 IN ONCE
     Route: 030
     Dates: start: 20211120, end: 20211120
  3. Johnson + Johnson  Covid vaccine [Concomitant]
     Indication: COVID-19 immunisation
     Dosage: 2ND DOSE ?1 IN ONCE
     Route: 030
  4. Johnson + Johnson  Covid vaccine [Concomitant]
     Indication: COVID-19 immunisation
     Dosage: 3RD DOSE (BOOSTER)?1 IN ONCE
     Route: 030
     Dates: start: 20220202, end: 20220202

REACTIONS (1)
  - Back disorder [Not Recovered/Not Resolved]
